FAERS Safety Report 5309068-1 (Version None)
Quarter: 2007Q2

REPORT INFORMATION
  Report Type: 
  Country: None (occurrence: None)
  Receive Date: 20070420
  Receipt Date: 20070405
  Transmission Date: 20071010
  Serious: Yes (Death, Hospitalization)
  Sender: FDA-Public Use
  Company Number: 062-20785-07031264

PATIENT
  Age: 87 Year
  Sex: Female

DRUGS (1)
  1. THALIDOMIDE [Suspect]
     Indication: PLASMACYTOMA
     Dosage: 100 MG, 2 IN 1 D, ORAL
     Route: 048
     Dates: start: 20061101

REACTIONS (15)
  - ACUTE RESPIRATORY FAILURE [None]
  - ANAEMIA [None]
  - AORTIC ARTERIOSCLEROSIS [None]
  - C-REACTIVE PROTEIN INCREASED [None]
  - CARDIAC FAILURE [None]
  - CARDIOMEGALY [None]
  - CHRONIC OBSTRUCTIVE PULMONARY DISEASE [None]
  - CONDITION AGGRAVATED [None]
  - LUNG INFECTION [None]
  - LUNG INFILTRATION [None]
  - PAIN [None]
  - PLEURAL CALCIFICATION [None]
  - RESTRICTIVE PULMONARY DISEASE [None]
  - SPINAL DISORDER [None]
  - TUBERCULOSIS [None]
